FAERS Safety Report 8586251-3 (Version None)
Quarter: 2012Q3

REPORT INFORMATION
  Report Type: 
  Country: None (occurrence: None)
  Receive Date: 20120810
  Receipt Date: 20120803
  Transmission Date: 20120928
  Serious: Yes (Hospitalization, Other)
  Sender: FDA-Public Use
  Company Number: JP-VERTEX PHARMACEUTICALS INC.-AE-2012-007858

PATIENT
  Age: 70 Year
  Sex: Male

DRUGS (7)
  1. TELAVIC [Suspect]
     Route: 048
     Dates: start: 20120526, end: 20120727
  2. PEGINTERFERON ALFA-2B [Concomitant]
     Indication: HEPATITIS C
     Route: 058
     Dates: start: 20120518, end: 20120607
  3. REBETOL [Concomitant]
     Route: 048
     Dates: start: 20120615, end: 20120727
  4. PEGINTERFERON ALFA-2B [Concomitant]
     Route: 058
     Dates: start: 20120615, end: 20120615
  5. PEGINTERFERON ALFA-2B [Concomitant]
     Route: 058
     Dates: start: 20120619, end: 20120728
  6. REBETOL [Concomitant]
     Indication: HEPATITIS C
     Route: 048
     Dates: start: 20120518, end: 20120614
  7. TELAVIC [Suspect]
     Indication: HEPATITIS C
     Route: 048
     Dates: start: 20120518, end: 20120521

REACTIONS (5)
  - BLOOD UREA INCREASED [None]
  - BLOOD CREATININE INCREASED [None]
  - ERYTHEMA [None]
  - BLOOD URIC ACID INCREASED [None]
  - HAEMOGLOBIN DECREASED [None]
